FAERS Safety Report 16076469 (Version 3)
Quarter: 2019Q2

REPORT INFORMATION
  Report Type: Spontaneous
  Country: US (occurrence: US)
  Receive Date: 20190315
  Receipt Date: 20190606
  Transmission Date: 20190711
  Serious: No
  Sender: FDA-Public Use
  Company Number: US-PFIZER INC-2019109328

PATIENT
  Age: 75 Year
  Sex: Female

DRUGS (14)
  1. DIOVAN [Suspect]
     Active Substance: VALSARTAN
     Dosage: UNK
  2. TRAZODONE [Suspect]
     Active Substance: TRAZODONE HYDROCHLORIDE
     Dosage: UNK
  3. TRAMADOL. [Suspect]
     Active Substance: TRAMADOL
     Dosage: UNK
  4. PAXIL [Suspect]
     Active Substance: PAROXETINE HYDROCHLORIDE
     Dosage: UNK
  5. TETRACAINE. [Suspect]
     Active Substance: TETRACAINE
     Dosage: UNK
  6. NITROSTAT [Concomitant]
     Active Substance: NITROGLYCERIN
     Indication: CHEST PAIN
     Dosage: 0.4 MG, AS NEEDED (1 TAB, SL EVERY 5 MIN, PRN)
     Route: 060
  7. TETRACYCLINE HCL [Suspect]
     Active Substance: TETRACYCLINE HYDROCHLORIDE
     Dosage: UNK
  8. CODEINE [Suspect]
     Active Substance: CODEINE
     Dosage: UNK
  9. ATACAND [Suspect]
     Active Substance: CANDESARTAN CILEXETIL
     Dosage: UNK
  10. AMLODIPINE BESILATE [Suspect]
     Active Substance: AMLODIPINE BESYLATE
     Dosage: UNK
  11. TALWIN [Suspect]
     Active Substance: PENTAZOCINE LACTATE
     Dosage: UNK
  12. ASPIRIN [ACETYLSALICYLIC ACID] [Suspect]
     Active Substance: ASPIRIN
     Dosage: UNK
  13. LIDEX [Suspect]
     Active Substance: FLUOCINONIDE
     Dosage: UNK
  14. FLEXERIL [Suspect]
     Active Substance: CYCLOBENZAPRINE HYDROCHLORIDE
     Dosage: UNK

REACTIONS (1)
  - Drug hypersensitivity [Unknown]
